FAERS Safety Report 13076607 (Version 1)
Quarter: 2016Q4

REPORT INFORMATION
  Report Type: Spontaneous
  Country: US (occurrence: US)
  Receive Date: 20161230
  Receipt Date: 20161230
  Transmission Date: 20170207
  Serious: Yes (Hospitalization)
  Sender: FDA-Public Use
  Company Number: US-CELGENEUS-USA-2016126364

PATIENT
  Age: 66 Year
  Sex: Male
  Weight: 74.3 kg

DRUGS (70)
  1. AZACITIDINE INJECTABLE [Suspect]
     Active Substance: AZACITIDINE
     Indication: ACUTE MYELOID LEUKAEMIA
     Dosage: 75 MG/M^2
     Route: 041
     Dates: start: 20160823
  2. SALINE [Concomitant]
     Active Substance: SODIUM CHLORIDE
     Indication: FLUID REPLACEMENT
  3. LEVETIRACETAM. [Concomitant]
     Active Substance: LEVETIRACETAM
     Indication: SEIZURE
     Dosage: 750-1000 MG
     Route: 048
     Dates: start: 2016
  4. PROCHLORPERAZINE. [Concomitant]
     Active Substance: PROCHLORPERAZINE
     Indication: PROPHYLAXIS OF NAUSEA AND VOMITING
     Dosage: 5-10 MG
     Route: 041
     Dates: start: 20160823
  5. TRAMADOL. [Concomitant]
     Active Substance: TRAMADOL
     Indication: MYALGIA
     Dosage: 25 MG
     Route: 048
     Dates: start: 20160813
  6. TRAZODONE [Concomitant]
     Active Substance: TRAZODONE HYDROCHLORIDE
     Indication: BIPOLAR DISORDER
     Dosage: 50 MG
     Route: 048
     Dates: start: 20160813, end: 20160902
  7. VALACYCLOVIR [Concomitant]
     Active Substance: VALACYCLOVIR HYDROCHLORIDE
     Indication: ANTIVIRAL PROPHYLAXIS
     Dosage: 1000 MG
     Route: 048
     Dates: start: 20160819
  8. WHITE PETROLATUM [Concomitant]
     Active Substance: PETROLATUM
     Indication: SKIN LESION
     Dosage: 41 %
     Route: 061
     Dates: start: 20161028
  9. VENETOCLAX [Suspect]
     Active Substance: VENETOCLAX
     Indication: ACUTE MYELOID LEUKAEMIA
     Dosage: 100 MG
     Route: 048
     Dates: start: 20160823, end: 20160823
  10. VENETOCLAX [Suspect]
     Active Substance: VENETOCLAX
     Dosage: 400 MG
     Route: 048
     Dates: start: 20160825, end: 20160919
  11. ACYCLOVIR. [Concomitant]
     Active Substance: ACYCLOVIR
     Indication: ANTIVIRAL PROPHYLAXIS
     Dosage: 2856 MG
     Route: 041
     Dates: start: 20160827, end: 20160829
  12. AMOXICILLIN. [Concomitant]
     Active Substance: AMOXICILLIN
     Indication: ANTIBIOTIC THERAPY
     Dosage: 1500 MG
     Route: 048
     Dates: start: 20160819, end: 20160823
  13. AMPICILLIN [Concomitant]
     Active Substance: AMPICILLIN
     Indication: ANTIBIOTIC THERAPY
     Dosage: 8 GRAM
     Route: 041
     Dates: start: 20160826, end: 20160829
  14. DEXTROSE. [Concomitant]
     Active Substance: DEXTROSE
     Indication: DIABETES MELLITUS
     Dosage: 12.5-25 GRAM
     Route: 041
     Dates: start: 20160813
  15. DOCUSATE SODIUM. [Concomitant]
     Active Substance: DOCUSATE SODIUM
     Indication: CONSTIPATION
     Dosage: 100 MG
     Route: 048
     Dates: start: 20160815
  16. GABAPENTIN. [Concomitant]
     Active Substance: GABAPENTIN
     Indication: MYALGIA
     Dosage: 200-300 MG
     Route: 048
     Dates: start: 20160813
  17. LACTATED RINGERS [Concomitant]
     Active Substance: CALCIUM CHLORIDE\POTASSIUM CHLORIDE\SODIUM CHLORIDE\SODIUM LACTATE
     Indication: PROPHYLAXIS
  18. POTASSIUM CHLORIDE. [Concomitant]
     Active Substance: POTASSIUM CHLORIDE
     Indication: HYPOKALAEMIA
     Dosage: 20-40 MEQ
     Route: 065
     Dates: start: 20160829
  19. ACETAMINOPHEN. [Concomitant]
     Active Substance: ACETAMINOPHEN
     Indication: PYREXIA
     Dosage: 650 MG
     Route: 048
     Dates: start: 20160813
  20. AMPHOTERICIN B. [Concomitant]
     Active Substance: AMPHOTERICIN B
     Indication: PNEUMONIA FUNGAL
     Dosage: 450 MG
     Route: 041
     Dates: start: 20160901, end: 20160911
  21. CHLORHEXIDINE [Concomitant]
     Active Substance: CHLORHEXIDINE
     Indication: GINGIVITIS
     Dosage: 30 ML
     Route: 002
     Dates: start: 20160825, end: 20160920
  22. LORATADINE. [Concomitant]
     Active Substance: LORATADINE
     Indication: ASTHMA
     Dosage: 10 MG
     Route: 048
     Dates: start: 20160813
  23. METFORMIN [Concomitant]
     Active Substance: METFORMIN HYDROCHLORIDE
     Indication: DIABETES MELLITUS
     Dosage: 2000 MG
     Route: 048
     Dates: start: 20160920, end: 20160928
  24. MONTELUKAST [Concomitant]
     Active Substance: MONTELUKAST SODIUM
     Indication: ASTHMA
     Dosage: 10 MG
     Route: 048
     Dates: start: 20160813, end: 20160920
  25. PROAIR HFA [Concomitant]
     Active Substance: ALBUTEROL SULFATE
     Indication: ASTHMA
     Dosage: 90 MCG
     Route: 055
     Dates: start: 20161020
  26. SENNOSIDES. [Concomitant]
     Active Substance: SENNOSIDES
     Indication: CONSTIPATION PROPHYLAXIS
     Route: 048
     Dates: start: 20160815
  27. VANCOMYCIN [Concomitant]
     Active Substance: VANCOMYCIN
     Indication: ANTIBIOTIC THERAPY
     Dosage: 1250-1750 MG
     Route: 041
     Dates: start: 20160826
  28. HUMALOG [Concomitant]
     Active Substance: INSULIN LISPRO
     Indication: DIABETES MELLITUS
     Dosage: 100 UNITS/MILLILTER
     Route: 030
     Dates: start: 20160928
  29. SALINE [Concomitant]
     Active Substance: SODIUM CHLORIDE
     Indication: PROPHYLAXIS
     Route: 065
     Dates: start: 20160813, end: 20160920
  30. ATORVASTATIN [Concomitant]
     Active Substance: ATORVASTATIN
     Indication: HYPERLIPIDAEMIA
     Dosage: 40 MG
     Route: 048
  31. INVOKAMET [Concomitant]
     Active Substance: CANAGLIFLOZIN\METFORMIN HYDROCHLORIDE
     Indication: DIABETES MELLITUS
     Route: 048
     Dates: start: 2016, end: 20160920
  32. DEXAMETHASONE. [Concomitant]
     Active Substance: DEXAMETHASONE
     Indication: PYREXIA
     Dosage: 4 MG
     Route: 041
     Dates: start: 20160827, end: 20160831
  33. DIPHENHYDRAMINE. [Concomitant]
     Active Substance: DIPHENHYDRAMINE
     Indication: PRURITUS
     Dosage: 25 MG
     Route: 048
     Dates: start: 20160901
  34. FILGRASTIM [Concomitant]
     Active Substance: FILGRASTIM
     Indication: NEUTROPENIA
     Dosage: 480 MCG
     Route: 058
     Dates: start: 20161102
  35. GLUCAGON. [Concomitant]
     Active Substance: GLUCAGON
     Indication: PRODUCT USED FOR UNKNOWN INDICATION
     Dosage: 1 MG
     Route: 030
     Dates: start: 20160813
  36. METOPROLOL. [Concomitant]
     Active Substance: METOPROLOL
     Indication: HYPERTENSION
     Dosage: 100 MG
     Route: 048
     Dates: start: 20160903
  37. MICAFUNGIN [Concomitant]
     Active Substance: MICAFUNGIN
     Indication: ANTIBIOTIC THERAPY
     Dosage: 100 MG
     Route: 041
     Dates: start: 20160826
  38. MOXIFLOXACIN. [Concomitant]
     Active Substance: MOXIFLOXACIN
     Indication: ANTIBIOTIC THERAPY
     Dosage: 400 MG
     Route: 048
     Dates: start: 20160819
  39. ONDANSETRON [Concomitant]
     Active Substance: ONDANSETRON
     Indication: NAUSEA
     Dosage: 16 MG
     Route: 041
     Dates: start: 20160823
  40. ZOSYN [Concomitant]
     Active Substance: PIPERACILLIN SODIUM\TAZOBACTAM SODIUM
     Indication: ANTIBIOTIC THERAPY
     Dosage: 18 GRAM
     Route: 041
     Dates: start: 20160823
  41. POSACONAZOLE [Concomitant]
     Active Substance: POSACONAZOLE
     Indication: FEBRILE NEUTROPENIA
     Dosage: 300 MG
     Route: 048
     Dates: start: 20161102, end: 20161102
  42. ALBUTEROL. [Concomitant]
     Active Substance: ALBUTEROL
     Indication: ASTHMA
     Dosage: 0.083%
     Route: 065
     Dates: start: 20160813
  43. CYANOCOBALAMIN. [Concomitant]
     Active Substance: CYANOCOBALAMIN
     Indication: SUPPLEMENTATION THERAPY
     Dosage: 1000 MCG
     Route: 048
     Dates: start: 2016, end: 20160920
  44. FENTANYL. [Concomitant]
     Active Substance: FENTANYL
     Indication: SEDATION
     Dosage: 50 MCG
     Route: 041
     Dates: start: 20160822
  45. INSULIN GLARGINE [Concomitant]
     Active Substance: INSULIN GLARGINE
     Indication: DIABETES MELLITUS
     Route: 058
     Dates: start: 20160818
  46. MAGNESIUM SULFATE. [Concomitant]
     Active Substance: MAGNESIUM SULFATE
     Indication: HYPOMAGNESAEMIA
     Dosage: 2-6 GRAMS
     Route: 041
     Dates: start: 20160814
  47. CEFEPIME [Concomitant]
     Active Substance: CEFEPIME HYDROCHLORIDE
     Indication: ANTIBIOTIC THERAPY
     Dosage: 6 GRAM
     Route: 041
     Dates: start: 20161108
  48. FENTANYL. [Concomitant]
     Active Substance: FENTANYL
     Indication: BIOPSY BONE MARROW
  49. ADVAIR HFA [Concomitant]
     Active Substance: FLUTICASONE PROPIONATE\SALMETEROL XINAFOATE
     Indication: ASTHMA
     Route: 055
     Dates: start: 20160813, end: 20160815
  50. LACTATED RINGERS [Concomitant]
     Active Substance: CALCIUM CHLORIDE\POTASSIUM CHLORIDE\SODIUM CHLORIDE\SODIUM LACTATE
     Indication: FLUID REPLACEMENT
     Dosage: 500 ML
     Route: 040
     Dates: start: 20161102
  51. LEVALBUTEROL. [Concomitant]
     Active Substance: LEVALBUTEROL
     Indication: ASTHMA
     Dosage: 1.25 MG
     Route: 065
     Dates: start: 20160902, end: 20160902
  52. LORAZEPAM. [Concomitant]
     Active Substance: LORAZEPAM
     Indication: NAUSEA
     Dosage: 0.5-1 MG
     Route: 041
     Dates: start: 20160813
  53. MEROPENEM. [Concomitant]
     Active Substance: MEROPENEM
     Indication: ANTIBIOTIC THERAPY
     Dosage: 1-2 GRAMS
     Route: 041
     Dates: start: 20160827
  54. MIRTAZAPINE. [Concomitant]
     Active Substance: MIRTAZAPINE
     Indication: DEPRESSION
     Dosage: 30 MG
     Route: 048
     Dates: start: 2016
  55. MIRALAX [Concomitant]
     Active Substance: POLYETHYLENE GLYCOL 3350
     Indication: CONSTIPATION
     Dosage: 17 GRAM
     Route: 048
     Dates: start: 20160816, end: 20160920
  56. SEVELAMER CARBONATE. [Concomitant]
     Active Substance: SEVELAMER CARBONATE
     Indication: TUMOUR LYSIS SYNDROME
     Dosage: 2400 MG
     Route: 048
     Dates: start: 20160823, end: 20160826
  57. SYMBICORT [Concomitant]
     Active Substance: BUDESONIDE\FORMOTEROL FUMARATE DIHYDRATE
     Indication: ASTHMA
     Dosage: 80-4.5 MCG
     Route: 055
     Dates: start: 20161017
  58. BACLOFEN. [Concomitant]
     Active Substance: BACLOFEN
     Indication: MYALGIA
     Dosage: 30 MG
     Route: 048
     Dates: end: 20160920
  59. SYMBICORT [Concomitant]
     Active Substance: BUDESONIDE\FORMOTEROL FUMARATE DIHYDRATE
     Indication: ASTHMA
     Dosage: 4 PUFFS
     Route: 055
     Dates: start: 2016, end: 20160920
  60. ADVAIR HFA [Concomitant]
     Active Substance: FLUTICASONE PROPIONATE\SALMETEROL XINAFOATE
     Route: 055
     Dates: start: 20160813, end: 20160815
  61. INSULIN ASPART [Concomitant]
     Active Substance: INSULIN ASPART
     Indication: DIABETES MELLITUS
     Dosage: 0-18 UNITS
     Route: 030
     Dates: start: 20160813
  62. OXYCODONE [Concomitant]
     Active Substance: OXYCODONE
     Indication: MYALGIA
     Dosage: 5 MG
     Route: 048
     Dates: start: 20161107, end: 20161108
  63. RIVAROXABAN [Concomitant]
     Active Substance: RIVAROXABAN
     Indication: DEEP VEIN THROMBOSIS
     Dosage: 20 MG
     Route: 048
     Dates: start: 2016, end: 20160826
  64. VENETOCLAX [Suspect]
     Active Substance: VENETOCLAX
     Dosage: 200 MG
     Route: 048
     Dates: start: 20160824, end: 20160824
  65. VENETOCLAX [Suspect]
     Active Substance: VENETOCLAX
     Dosage: 400 MG
     Route: 048
     Dates: start: 20160928
  66. DEXTROMETHORPHAN [Concomitant]
     Active Substance: DEXTROMETHORPHAN
     Indication: COUGH
     Dosage: 60 MG
     Route: 048
     Dates: start: 20160830, end: 20160920
  67. FERROUS SULFATE. [Concomitant]
     Active Substance: FERROUS SULFATE
     Indication: SUPPLEMENTATION THERAPY
     Dosage: 975 MG
     Route: 048
     Dates: start: 2016, end: 20160822
  68. FUROSEMIDE. [Concomitant]
     Active Substance: FUROSEMIDE
     Indication: FLUID OVERLOAD
     Dosage: 20-40 MG
     Route: 041
     Dates: start: 20160813
  69. METRONIDAZOLE. [Concomitant]
     Active Substance: METRONIDAZOLE
     Indication: ANTIBIOTIC THERAPY
     Dosage: 1500 MG
     Route: 041
     Dates: start: 20161108
  70. RISPERIDONE. [Concomitant]
     Active Substance: RISPERIDONE
     Indication: BIPOLAR DISORDER
     Dosage: 0.25-0.5 MG
     Route: 048
     Dates: start: 20160813

REACTIONS (2)
  - Asthenia [Not Recovered/Not Resolved]
  - Dizziness [Not Recovered/Not Resolved]

NARRATIVE: CASE EVENT DATE: 20161119
